FAERS Safety Report 8151292-7 (Version None)
Quarter: 2012Q1

REPORT INFORMATION
  Report Type: 
  Country: None (occurrence: None)
  Receive Date: 20120220
  Receipt Date: 20120215
  Transmission Date: 20120608
  Serious: Yes (Life-Threatening)
  Sender: FDA-Public Use
  Company Number: IT-ASTRAZENECA-2012SE00212

PATIENT
  Age: 30029 Day
  Sex: Male

DRUGS (11)
  1. ROCEPHIN [Concomitant]
     Indication: PNEUMONITIS
     Route: 042
  2. POTASSIUM CHLORIDE [Concomitant]
     Indication: HYPOKALAEMIC SYNDROME
     Route: 048
  3. SODIUM BICARBONATE [Concomitant]
     Indication: RHABDOMYOLYSIS
     Dosage: 1MEQ/ML CONCENTRATE SOLUTION FOR INFUSION, VIALS 10ML , 42 ML
     Route: 041
  4. ALBUTEROL SULFATE [Concomitant]
     Route: 055
  5. LASIX [Concomitant]
     Indication: CARDIAC FAILURE
     Dosage: 20 MG\2ML, TOTAL DAILY DOSE: 2 DF
     Route: 042
  6. BECLOMETHASONE DIPROPIONATE [Concomitant]
     Dosage: 0,8 MG\2ML SUSPENSION TO BE NEBULIZED, TOTAL DAILY DOSE: 1 DF
     Route: 055
  7. MERREM [Suspect]
     Indication: URINARY TRACT INFECTION PSEUDOMONAL
     Route: 042
     Dates: start: 20111214, end: 20111214
  8. ATEM [Concomitant]
     Dosage: 0.025 %, TOTAL DAILY DOSE: 0.5 DF
     Route: 055
  9. METHYLPREDNISOLONE [Concomitant]
     Indication: PNEUMONITIS
     Dosage: 20 MG/ML POWDER, TOTAL DAILY DOSE: 1 DF
     Route: 030
  10. MEPRAL [Concomitant]
     Route: 042
  11. MICONAZOLE [Concomitant]
     Indication: ORAL CANDIDIASIS
     Dosage: 2% ORAL GEL ,80G^ TUBE^, TOTAL DAILY DOSE: 3 DF
     Route: 061

REACTIONS (2)
  - LARYNGEAL OEDEMA [None]
  - DYSPNOEA [None]
